FAERS Safety Report 14242192 (Version 1)
Quarter: 2017Q4

REPORT INFORMATION
  Report Type: Spontaneous
  Country: US (occurrence: US)
  Receive Date: 20171201
  Receipt Date: 20171201
  Transmission Date: 20180321
  Serious: Yes (Hospitalization, Other)
  Sender: FDA-Public Use
  Company Number: US-TEVA-2017-US-828027

PATIENT
  Age: 55 Year
  Sex: Female

DRUGS (2)
  1. ACTIQ [Suspect]
     Active Substance: FENTANYL CITRATE
     Indication: PAIN
     Route: 065
  2. DILAUDID [Concomitant]
     Active Substance: HYDROMORPHONE HYDROCHLORIDE
     Indication: PRODUCT USED FOR UNKNOWN INDICATION
     Route: 065

REACTIONS (8)
  - Pain [Unknown]
  - Abdominal pain [Not Recovered/Not Resolved]
  - Hypokinesia [Unknown]
  - Dyspnoea [Unknown]
  - Chest pain [Unknown]
  - Dysphagia [Unknown]
  - Drug intolerance [Unknown]
  - Crying [Unknown]

NARRATIVE: CASE EVENT DATE: 20171117
